FAERS Safety Report 7397049-6 (Version None)
Quarter: 2011Q2

REPORT INFORMATION
  Report Type: 
  Country: None (occurrence: None)
  Receive Date: 20110406
  Receipt Date: 20110404
  Transmission Date: 20111010
  Serious: Yes (Death, Hospitalization)
  Sender: FDA-Public Use
  Company Number: BE-ELI_LILLY_AND_COMPANY-BE201012005854

PATIENT
  Sex: Male

DRUGS (13)
  1. VITAMIN B-12 [Concomitant]
     Indication: PROPHYLAXIS
     Dates: start: 20100927
  2. METHYLPREDNISOLONE [Concomitant]
     Indication: DYSPNOEA
  3. ENOXAPARIN [Concomitant]
     Indication: THROMBOSIS
     Dates: start: 20101215
  4. PEMETREXED [Suspect]
     Indication: NON-SMALL CELL LUNG CANCER STAGE III
     Dosage: 500 MG/M2, D1, D22 AND D43
     Route: 042
     Dates: start: 20101004, end: 20101115
  5. CISPLATIN [Suspect]
     Indication: NON-SMALL CELL LUNG CANCER STAGE III
     Dosage: 75 MG/M2, D1, D22 AND D43
     Route: 042
     Dates: start: 20101004, end: 20101115
  6. NAPROXEN [Concomitant]
  7. RADIATION [Suspect]
     Indication: NON-SMALL CELL LUNG CANCER STAGE III
     Dosage: 2 GY, DAILY (1/D)
     Dates: start: 20101004, end: 20101118
  8. FOLIC ACID [Concomitant]
     Indication: PROPHYLAXIS
     Dates: start: 20100927
  9. THEBACON [Concomitant]
     Indication: COUGH
     Dates: start: 20101222
  10. DEXAMETHASONE [Concomitant]
     Indication: PROPHYLAXIS
     Dates: start: 20101003
  11. PANTOPRAZOLE SODIUM [Concomitant]
     Indication: PROPHYLAXIS
  12. PEMETREXED [Suspect]
     Dosage: 500 MG/M2,  D1, 22, 43, 64
     Route: 042
     Dates: start: 20101215
  13. SIMVASTATIN [Concomitant]
     Indication: HYPERCHOLESTEROLAEMIA
     Dosage: UNK, UNK
     Dates: start: 20080101

REACTIONS (2)
  - PULMONARY HAEMORRHAGE [None]
  - PNEUMONIA [None]
